FAERS Safety Report 5407238-5 (Version None)
Quarter: 2007Q3

REPORT INFORMATION
  Report Type: 
  Country: None (occurrence: None)
  Receive Date: 20070807
  Receipt Date: 20070802
  Transmission Date: 20080115
  Serious: Yes (Hospitalization)
  Sender: FDA-Public Use
  Company Number: A0668180A

PATIENT
  Age: 64 Year
  Sex: Female

DRUGS (7)
  1. AVANDIA [Suspect]
     Route: 048
     Dates: start: 20000101, end: 20070501
  2. AMARYL [Concomitant]
  3. PAXIL [Concomitant]
  4. LANTUS [Concomitant]
  5. GEMFIBROZIL [Concomitant]
  6. ASPIRIN [Concomitant]
  7. CALCIUM CHLORIDE [Concomitant]

REACTIONS (4)
  - ABDOMINAL DISTENSION [None]
  - DYSPNOEA [None]
  - FLUID RETENTION [None]
  - OEDEMA PERIPHERAL [None]
